FAERS Safety Report 20159595 (Version 1)
Quarter: 2021Q4

REPORT INFORMATION
  Report Type: Other
  Country: BE (occurrence: None)
  Receive Date: 20211208
  Receipt Date: 20211208
  Transmission Date: 20220303
  Serious: Yes (Hospitalization)
  Sender: FDA-Public Use
  Company Number: BE-Laurus-001176

PATIENT
  Age: 56 Year
  Sex: Male

DRUGS (2)
  1. HYDROXYCHLOROQUINE [Suspect]
     Active Substance: HYDROXYCHLOROQUINE
     Indication: Cutaneous lupus erythematosus
     Dosage: 200 MG TWICE A DAY
  2. ASPIRIN [Concomitant]
     Active Substance: ASPIRIN
     Indication: Pericarditis
     Dosage: 1000 MG FOUR TIMES A DAY

REACTIONS (2)
  - COVID-19 [Unknown]
  - Decreased immune responsiveness [Unknown]
